FAERS Safety Report 7789133-X (Version None)
Quarter: 2011Q3

REPORT INFORMATION
  Report Type: 
  Country: None (occurrence: None)
  Receive Date: 20110928
  Receipt Date: 20110916
  Transmission Date: 20111222
  Serious: Yes (Death, Hospitalization)
  Sender: FDA-Public Use
  Company Number: KAD201109-000016

PATIENT
  Age: 33 Year
  Sex: Female

DRUGS (11)
  1. CYCLOSPORINE [Suspect]
     Dosage: 175 MG PER DAY
  2. VANCOMYCIN [Suspect]
  3. VORICONAZOLE [Suspect]
  4. RIFAMPIN [Suspect]
     Indication: TUBERCULOSIS
  5. ISONIAZID [Suspect]
     Indication: TUBERCULOSIS
  6. PYRAZINAMIDE [Suspect]
     Indication: TUBERCULOSIS
  7. AMPHOTERICIN B [Suspect]
     Indication: ASPERGILLOSIS
  8. MYCOPHENOLATE MOFETIL [Suspect]
     Dosage: 1000 MG TWICE A DAY, ORAL
     Route: 048
  9. CEFTRIAXONE [Suspect]
  10. PREDNISOLONE [Suspect]
     Dosage: 5 MG PER DAY
  11. ETHAMBUTOL HYDROCHLORIDE [Suspect]
     Indication: TUBERCULOSIS

REACTIONS (8)
  - LYMPHADENOPATHY [None]
  - HYDROCEPHALUS [None]
  - HAEMOGLOBIN S DECREASED [None]
  - ENCEPHALITIS MENINGOCOCCAL [None]
  - CONDITION AGGRAVATED [None]
  - SPLENOMEGALY [None]
  - DEPRESSED LEVEL OF CONSCIOUSNESS [None]
  - GENERAL PHYSICAL HEALTH DETERIORATION [None]
